FAERS Safety Report 23790465 (Version 1)
Quarter: 2024Q2

REPORT INFORMATION
  Report Type: Spontaneous
  Country: CA (occurrence: CA)
  Receive Date: 20240427
  Receipt Date: 20240427
  Transmission Date: 20240716
  Serious: Yes (Other)
  Sender: FDA-Public Use
  Company Number: CA-TEVA-VS-3188209

PATIENT
  Age: 39 Year
  Sex: Female

DRUGS (5)
  1. PREDNISONE [Suspect]
     Active Substance: PREDNISONE
     Indication: Lupus nephritis
     Dosage: DOSAGE FORM:NOT SPECIFIED
     Route: 048
  2. PREDNISONE [Suspect]
     Active Substance: PREDNISONE
     Indication: Lupus nephritis
     Dosage: DOSAGE FORM:NOT SPECIFIED
     Route: 048
  3. PREDNISONE [Suspect]
     Active Substance: PREDNISONE
     Indication: Lupus nephritis
     Dosage: DOSAGE FORM:NOT SPECIFIED
     Route: 048
  4. MYCOPHENOLATE MOFETIL [Suspect]
     Active Substance: MYCOPHENOLATE MOFETIL
     Indication: Lupus nephritis
     Dosage: DOSAGE FORM:NOT SPECIFIED
     Route: 065
  5. MYCOPHENOLATE MOFETIL [Suspect]
     Active Substance: MYCOPHENOLATE MOFETIL
     Indication: Lupus nephritis
     Dosage: DOSAGE FORM:NOT SPECIFIED
     Route: 065

REACTIONS (6)
  - Cytomegalovirus chorioretinitis [Recovered/Resolved]
  - Cytomegalovirus viraemia [Recovered/Resolved]
  - Retinal degeneration [Recovered/Resolved]
  - Retinal detachment [Recovered/Resolved]
  - Visual acuity reduced [Recovered/Resolved]
  - Vitreous floaters [Recovered/Resolved]
